FAERS Safety Report 11301662 (Version 1)
Quarter: 2015Q3

REPORT INFORMATION
  Report Type: Spontaneous
  Country: US (occurrence: US)
  Receive Date: 20150722
  Receipt Date: 20150722
  Transmission Date: 20151125
  Serious: No
  Sender: FDA-Public Use
  Company Number: US-ELI_LILLY_AND_COMPANY-US201102003103

PATIENT
  Sex: Male

DRUGS (2)
  1. HUMATROPE [Suspect]
     Active Substance: SOMATROPIN
     Dosage: 2.8 MG, 6/W
  2. HUMATROPE [Suspect]
     Active Substance: SOMATROPIN
     Dosage: 1 D/F, UNKNOWN

REACTIONS (3)
  - Incorrect dose administered [Recovered/Resolved]
  - Product use issue [Unknown]
  - Wrong technique in product usage process [Recovered/Resolved]
